FAERS Safety Report 7131365-8 (Version None)
Quarter: 2010Q4

REPORT INFORMATION
  Report Type: 
  Country: None (occurrence: None)
  Receive Date: 20101124
  Receipt Date: 20101124
  Transmission Date: 20110411
  Serious: Yes (Other)
  Sender: FDA-Public Use
  Company Number: None

PATIENT
  Age: 34 Year
  Sex: Female
  Weight: 68.4932 kg

DRUGS (1)
  1. GLUMETZA [Suspect]
     Indication: POLYCYSTIC OVARIES
     Dosage: 1000MG 1XDAILY PO
     Route: 048
     Dates: start: 20101112, end: 20101123

REACTIONS (6)
  - ABDOMINAL DISCOMFORT [None]
  - FEELING COLD [None]
  - FORMICATION [None]
  - NAUSEA [None]
  - PRURITUS [None]
  - RASH [None]
